FAERS Safety Report 7183379-X (Version None)
Quarter: 2010Q4

REPORT INFORMATION
  Report Type: 
  Country: None (occurrence: None)
  Receive Date: 20101220
  Receipt Date: 20101220
  Transmission Date: 20110411
  Serious: Yes (Hospitalization)
  Sender: FDA-Public Use
  Company Number: None

PATIENT
  Age: 64 Year
  Sex: Female
  Weight: 100 kg

DRUGS (14)
  1. COUMADIN [Suspect]
     Indication: ATRIAL FIBRILLATION
     Dosage: 6 MG DAILY PO CHRONIC
     Route: 048
  2. NEXIUM [Concomitant]
  3. VYTORIN [Concomitant]
  4. HCL [Concomitant]
  5. ENALAPRIL [Concomitant]
  6. VIT C [Concomitant]
  7. CA VIT D [Concomitant]
  8. FOSAMAX [Concomitant]
  9. ADVAIR [Concomitant]
  10. APAP/DIPHENHYDRAMINE [Concomitant]
  11. APAP TAB [Concomitant]
  12. BUMEX [Concomitant]
  13. AMIODARONE [Concomitant]
  14. DUONEB [Concomitant]

REACTIONS (3)
  - CARDIAC FAILURE [None]
  - HAEMOPTYSIS [None]
  - RESPIRATORY FAILURE [None]
